FAERS Safety Report 5292807-6 (Version None)
Quarter: 2007Q1

REPORT INFORMATION
  Report Type: 
  Country: None (occurrence: None)
  Receive Date: 20070116
  Receipt Date: 20060118
  Transmission Date: 20070707
  Serious: Yes (Other)
  Sender: FDA-Public Use
  Company Number: HQWYE438619JAN06

PATIENT
  Age: 47 Year
  Sex: Female
  Weight: 64.92 kg

DRUGS (4)
  1. PREMPRO [Suspect]
     Indication: MENOPAUSAL SYMPTOMS
     Dosage: 0.45 MG/1.5 MG DAILY, ORAL
     Route: 048
     Dates: start: 20031126, end: 20051111
  2. XANAX [Concomitant]
  3. CYMBALTA [Concomitant]
  4. ADVIL [Concomitant]

REACTIONS (1)
  - BREAST CANCER [None]
